FAERS Safety Report 7320914-2 (Version None)
Quarter: 2011Q1

REPORT INFORMATION
  Report Type: 
  Country: None (occurrence: None)
  Receive Date: 20110228
  Receipt Date: 20110221
  Transmission Date: 20110831
  Serious: Yes (Other)
  Sender: FDA-Public Use
  Company Number: NZ-ROCHE-761006

PATIENT

DRUGS (1)
  1. VESANOID [Suspect]
     Route: 065

REACTIONS (2)
  - MYOSITIS [None]
  - BLOOD CREATINE PHOSPHOKINASE INCREASED [None]
